FAERS Safety Report 9489957 (Version 2)
Quarter: 2014Q1

REPORT INFORMATION
  Report Type: Spontaneous
  Country: US (occurrence: US)
  Receive Date: 20130829
  Receipt Date: 20140213
  Transmission Date: 20141002
  Serious: Yes (Hospitalization)
  Sender: FDA-Public Use
  Company Number: US-B.I. PHARMACEUTICALS,INC./RIDGEFIELD-2013-BI-26865BP

PATIENT
  Sex: Male
  Weight: 72.57 kg

DRUGS (12)
  1. PRADAXA [Suspect]
     Indication: ATRIAL FIBRILLATION
     Dates: start: 20110831, end: 20110904
  2. DRONEDARONE [Concomitant]
  3. DIGOXIN [Concomitant]
  4. ASPIRIN [Concomitant]
     Dosage: 81 MG
  5. LASIX [Concomitant]
     Dosage: 20 MG
  6. ALLOPURINOL [Concomitant]
     Dosage: 300 MG
  7. VITAMIN B12 [Concomitant]
  8. TYLENOL [Concomitant]
  9. CALCIUM [Concomitant]
  10. PREDNISONE [Concomitant]
     Dosage: 20 MG
  11. OXYGEN [Concomitant]
     Indication: PULMONARY FIBROSIS
  12. OXYGEN [Concomitant]
     Indication: CHRONIC RESPIRATORY FAILURE

REACTIONS (3)
  - Gastrointestinal haemorrhage [Recovered/Resolved]
  - Skin haemorrhage [Unknown]
  - Eye haemorrhage [Unknown]
